FAERS Safety Report 6591394-X (Version None)
Quarter: 2010Q1

REPORT INFORMATION
  Report Type: 
  Country: None (occurrence: None)
  Receive Date: 20100219
  Receipt Date: 20100209
  Transmission Date: 20100710
  Serious: Yes (Hospitalization)
  Sender: FDA-Public Use
  Company Number: DE-WATSON-2010-00892

PATIENT
  Age: 86 Year
  Sex: Male

DRUGS (4)
  1. RAMIPRIL [Suspect]
     Indication: DRUG USE FOR UNKNOWN INDICATION
     Dosage: 2.5/12.5 MG
     Dates: start: 20080121, end: 20080305
  2. EXELON [Suspect]
     Indication: DEMENTIA ALZHEIMER'S TYPE
     Dosage: 4.6 MG, DAILY
     Route: 062
  3. SEROQUEL [Suspect]
     Indication: DRUG USE FOR UNKNOWN INDICATION
     Dosage: 50 MG, DAILY
     Dates: start: 20080131, end: 20080305
  4. ZOPICLON [Suspect]
     Indication: DRUG USE FOR UNKNOWN INDICATION
     Dosage: 7 1/2 MG, DAILY
     Dates: start: 20080121, end: 20080305

REACTIONS (1)
  - CONFUSIONAL STATE [None]
